FAERS Safety Report 9143225 (Version 1)
Quarter: 2013Q1

REPORT INFORMATION
  Report Type: Spontaneous
  Country: US (occurrence: US)
  Receive Date: 20130306
  Receipt Date: 20130306
  Transmission Date: 20140127
  Serious: Yes (Other)
  Sender: FDA-Public Use
  Company Number: 2013SP000606

PATIENT
  Age: 20 Year
  Sex: Female

DRUGS (8)
  1. LATUDA [Suspect]
     Indication: BIPOLAR I DISORDER
     Route: 048
  2. LATUDA [Suspect]
     Indication: BIPOLAR I DISORDER
     Route: 048
  3. LATUDA [Suspect]
     Indication: BIPOLAR I DISORDER
     Route: 048
  4. LATUDA [Suspect]
     Indication: BIPOLAR I DISORDER
     Route: 048
  5. LATUDA [Suspect]
     Indication: BIPOLAR I DISORDER
     Route: 048
  6. LATUDA [Suspect]
     Indication: BIPOLAR I DISORDER
     Route: 048
  7. LATUDA [Suspect]
     Indication: BIPOLAR I DISORDER
     Route: 048
  8. BENZODIAZEPINE RELATED DRUGS [Concomitant]
     Indication: ANXIETY

REACTIONS (2)
  - Serotonin syndrome [Recovered/Resolved]
  - Nausea [Unknown]
